FAERS Safety Report 9207632 (Version 2)
Quarter: 2014Q1

REPORT INFORMATION
  Report Type: Spontaneous
  Country: US (occurrence: US)
  Receive Date: 20130403
  Receipt Date: 20140130
  Transmission Date: 20141002
  Serious: Yes (Other)
  Sender: FDA-Public Use
  Company Number: US-BAYER-2013-039944

PATIENT
  Sex: Female

DRUGS (8)
  1. YAZ [Suspect]
     Dosage: UNK
     Dates: start: 200603
  2. YASMIN [Suspect]
     Dosage: UNK
     Dates: start: 200603
  3. OCELLA [Suspect]
     Dosage: UNK
     Dates: start: 200603
  4. ZOFRAN [Concomitant]
     Route: 042
  5. TORADOL [Concomitant]
     Dosage: 30 MG, UNK
     Route: 042
  6. PANTOPRAZOLE SODIUM [Concomitant]
     Dosage: 40 MG, 1 TABLET DAILY 1/2 HOUR PRIOR TO BREAKFAST
  7. PROTONIX [Concomitant]
  8. HYOSCYAMINE SULFATE [Concomitant]
     Dosage: 0.125 MG, 1 TABLET 4 TIMES DAILY, PRN

REACTIONS (7)
  - Cholecystitis chronic [None]
  - Gallbladder disorder [None]
  - Injury [None]
  - Pain [None]
  - Emotional distress [None]
  - Anxiety [None]
  - Psychological trauma [None]
